FAERS Safety Report 7335505-7 (Version None)
Quarter: 2011Q1

REPORT INFORMATION
  Report Type: 
  Country: None (occurrence: None)
  Receive Date: 20110301
  Receipt Date: 20110301
  Transmission Date: 20110831
  Serious: Yes (Hospitalization)
  Sender: FDA-Public Use
  Company Number: None

PATIENT
  Age: 35 Year
  Sex: Male
  Weight: 123.4 kg

DRUGS (8)
  1. WARFARIN SODIUM [Concomitant]
  2. MORPHINE [Concomitant]
  3. LORAZEPAM [Concomitant]
  4. ONDANSETRON [Concomitant]
  5. ENOXAPARIN [Concomitant]
  6. ISOVUE-370 [Suspect]
     Indication: CHEST X-RAY
     Dosage: 100ML ONCE IV
     Route: 042
     Dates: start: 20100806
  7. ACETAMINOPHEN [Concomitant]
  8. OXYCODONE/ACETAMINOPHEN [Concomitant]

REACTIONS (11)
  - LIP SWELLING [None]
  - HYPOTENSION [None]
  - STRIDOR [None]
  - ERYTHEMA [None]
  - EYE SWELLING [None]
  - MENTAL STATUS CHANGES [None]
  - ARRHYTHMIA [None]
  - UNRESPONSIVE TO STIMULI [None]
  - VOMITING [None]
  - HYPERHIDROSIS [None]
  - NAUSEA [None]
